FAERS Safety Report 16758849 (Version 3)
Quarter: 2022Q4

REPORT INFORMATION
  Report Type: Spontaneous
  Country: RO (occurrence: RO)
  Receive Date: 20190830
  Receipt Date: 20221012
  Transmission Date: 20230112
  Serious: Yes (Death, Life-Threatening, Hospitalization, Other)
  Sender: FDA-Public Use
  Company Number: RO-MLMSERVICE-20190813-1896524-1

PATIENT
  Age: 66 Year
  Sex: Female
  Weight: 78 kg

DRUGS (19)
  1. METHOTREXATE [Suspect]
     Active Substance: METHOTREXATE
     Indication: B precursor type acute leukaemia
     Dosage: STRENGTH : 5 MG, VIALS OF 5 G 1375 MG I.V. IN A 22 HOURS PERFUSION
     Route: 042
     Dates: start: 20170203, end: 20170203
  2. DOXORUBICIN [Suspect]
     Active Substance: DOXORUBICIN
     Indication: B precursor type acute leukaemia
     Dosage: STRENGTH : 50 MG,VIALS OF 50 MG, 80 MG I.V ON 16-JAN-2017.
     Route: 042
     Dates: start: 20170116
  3. CYTARABINE [Suspect]
     Active Substance: CYTARABINE
     Indication: B precursor type acute leukaemia
     Dosage: STRENGTH : 2 G,VIALS OF 2 G, 2X2 GRAMS/DAY, IN I.V., PERFUSIONS OF 2 HOURS, AT 12 HOURS INTERVAL,
     Route: 042
     Dates: start: 20170204, end: 20170205
  4. METHYLPREDNISOLONE [Suspect]
     Active Substance: METHYLPREDNISOLONE
     Indication: Product used for unknown indication
     Dosage: STRENGTH : 500 MG, VIALS OF 500 MG, 50 MG AT 12 HOURS INTERVAL
     Route: 042
     Dates: start: 20170203, end: 20170205
  5. DEXAMETHASONE [Suspect]
     Active Substance: DEXAMETHASONE
     Indication: B precursor type acute leukaemia
     Dosage: STRENGTH : 8 MG,5 VIALS/DAY, I.V., BETWEEN 13 AND 16.01.2017
     Route: 042
     Dates: start: 20170123, end: 20170126
  6. CYCLOPHOSPHAMIDE [Suspect]
     Active Substance: CYCLOPHOSPHAMIDE
     Indication: B precursor type acute leukaemia
     Dosage: STRENGTH : 200 MG,VIALS OF 200 MG, 340 MG/DOSE, 2 DOSES/DAY
     Route: 042
     Dates: start: 20170113, end: 20170115
  7. VINCRISTINE [Suspect]
     Active Substance: VINCRISTINE
     Indication: B precursor type acute leukaemia
     Dosage: VIALS OF 1 MG, 2 VIALS/DAY, I.V
     Route: 042
     Dates: start: 201701, end: 20170123
  8. AMPICILLIN [Suspect]
     Active Substance: AMPICILLIN
     Indication: Urinary tract infection enterococcal
     Dosage: STRENGTH : 1 G,VIALS OF 1 G AT A DOSING OF 2X2 G/DAY, I.V.,
     Route: 042
     Dates: start: 20170203, end: 20170211
  9. MEROPENEM [Suspect]
     Active Substance: MEROPENEM
     Indication: Enterococcal infection
     Dosage: STRENGTH : 1 G,VIALS OF 1 G, AT A DOSING OF 3 X1G/DAY, I.V.,
     Route: 042
     Dates: start: 20170212
  10. RIFAXIMIN [Suspect]
     Active Substance: RIFAXIMIN
     Indication: Product used for unknown indication
     Dosage: STRENGTH : 200 MG,3X2 TABLETS/DAY, ORALLY
     Route: 048
     Dates: start: 20170203, end: 20170226
  11. SULFAMETHOXAZOLE\TRIMETHOPRIM [Suspect]
     Active Substance: SULFAMETHOXAZOLE\TRIMETHOPRIM
     Indication: Product used for unknown indication
     Dosage: STRENGTH : 400MG/80MG,2X2 TABLETS/DAY, ORALLY, ON 5
     Route: 048
     Dates: start: 20170205, end: 20170213
  12. IMIPENEM [Suspect]
     Active Substance: IMIPENEM
     Indication: Enterococcal infection
     Dosage: 0.5 GRAM,VIALS OF 0.5 G, AT A DOSING OF 4X1 VIALS/DAY
     Route: 042
     Dates: start: 20170213, end: 20170226
  13. LINEZOLID [Suspect]
     Active Substance: LINEZOLID
     Indication: Urinary tract infection enterococcal
     Dosage: STRENGTH: 600 MG,VIALS OF 600 MG AT A DOSING OF 2X1 VIALS/DAY
     Route: 042
     Dates: start: 20170212, end: 20170226
  14. DEXAMETHASONE [Concomitant]
     Active Substance: DEXAMETHASONE
     Dosage: STRENGTH : 1%,ONE DROP PER HOUR IN THE CONJUNCTIVAL SAC, BETWEEN 4 AND 7-FEB-2017
     Route: 031
     Dates: start: 20170204, end: 20170207
  15. METHOTREXATE [Suspect]
     Active Substance: METHOTREXATE
     Indication: B precursor type acute leukaemia
     Dosage: STRENGTH : 5 MG, VIALS OF 5 G 1375 MG I.V. IN A 22 HOURS PERFUSION
     Route: 042
     Dates: start: 20170203, end: 20170203
  16. METHOTREXATE [Suspect]
     Active Substance: METHOTREXATE
     Indication: B precursor type acute leukaemia
     Dosage: STRENGTH : 5 MG, VIALS OF 5 G 1375 MG I.V. IN A 22 HOURS PERFUSION
     Route: 037
     Dates: start: 20170130, end: 20170130
  17. VINCRISTINE [Suspect]
     Active Substance: VINCRISTINE
     Indication: B precursor type acute leukaemia
     Dosage: VIALS OF 1 MG, 2 VIALS/DAY, I.V
     Route: 042
     Dates: start: 20170115, end: 20170123
  18. DEXAMETHASONE [Suspect]
     Active Substance: DEXAMETHASONE
     Indication: B precursor type acute leukaemia
     Dosage: STRENGTH : 8 MG,5 VIALS/DAY, I.V., BETWEEN 13 AND 16.01.2017
     Route: 042
     Dates: start: 20170113, end: 20170116
  19. CYTARABINE [Suspect]
     Active Substance: CYTARABINE
     Indication: B precursor type acute leukaemia
     Dosage: VIALS OF 1 G, 25 MG I.T. ON 30.01.2017
     Dates: start: 20170130

REACTIONS (5)
  - Acute hepatic failure [Fatal]
  - Hepatotoxicity [Not Recovered/Not Resolved]
  - Clostridium difficile colitis [Recovered/Resolved]
  - Aplasia [Recovering/Resolving]
  - Hepatic infarction [Fatal]

NARRATIVE: CASE EVENT DATE: 20170101
